FAERS Safety Report 6749989-6 (Version None)
Quarter: 2010Q2

REPORT INFORMATION
  Report Type: 
  Country: None (occurrence: None)
  Receive Date: 20100601
  Receipt Date: 20100520
  Transmission Date: 20101027
  Serious: Yes (Hospitalization)
  Sender: FDA-Public Use
  Company Number: FR-ELI_LILLY_AND_COMPANY-FR201005005513

PATIENT
  Sex: Female
  Weight: 62 kg

DRUGS (2)
  1. GEMCITABINE HYDROCHLORIDE [Suspect]
     Indication: NON-SMALL CELL LUNG CANCER
     Dosage: 2150 MG, UNKNOWN
     Route: 042
     Dates: start: 20061114
  2. CISPLATIN [Suspect]
     Indication: NON-SMALL CELL LUNG CANCER
     Dosage: 140 MG, UNKNOWN
     Route: 042
     Dates: start: 20061114

REACTIONS (1)
  - GENERAL PHYSICAL HEALTH DETERIORATION [None]
